FAERS Safety Report 4736523-5 (Version None)
Quarter: 2005Q3

REPORT INFORMATION
  Report Type: 
  Country: None (occurrence: None)
  Receive Date: 20050804
  Receipt Date: 20050804
  Transmission Date: 20060218
  Serious: Yes (Other)
  Sender: FDA-Public Use
  Company Number: None

PATIENT
  Age: 77 Year
  Sex: Male
  Weight: 82.6 kg

DRUGS (13)
  1. ISONIAZID [Suspect]
  2. HYDROCHLOROTHIAZIDE [Concomitant]
  3. ATENOLOL [Concomitant]
  4. FOSINOPRIL NA [Concomitant]
  5. LOVASTATIN [Concomitant]
  6. OMEPRAZOLE [Concomitant]
  7. CALCIUM 250MG/VITAMIN D [Concomitant]
  8. ISOSORBIDE MONONITRATE [Concomitant]
  9. PYRIDOXINE HCL [Concomitant]
  10. ISONIAZID [Concomitant]
  11. NITROGLYCERIN [Concomitant]
  12. WARFARIN [Concomitant]
  13. ASPIRIN [Concomitant]

REACTIONS (1)
  - LABORATORY TEST ABNORMAL [None]
